FAERS Safety Report 16727283 (Version 1)
Quarter: 2019Q3

REPORT INFORMATION
  Report Type: Spontaneous
  Country: US (occurrence: US)
  Receive Date: 20190822
  Receipt Date: 20190822
  Transmission Date: 20191005
  Serious: No
  Sender: FDA-Public Use
  Company Number: US-SA-2019SA230668

PATIENT
  Sex: Male
  Weight: 90.7 kg

DRUGS (13)
  1. LANOLIN ANHYDROUS [Concomitant]
     Active Substance: LANOLIN
  2. OTEZLA [Concomitant]
     Active Substance: APREMILAST
  3. ATORVASTATIN CALCIUM. [Concomitant]
     Active Substance: ATORVASTATIN CALCIUM
  4. METRONIDAZOLE. [Concomitant]
     Active Substance: METRONIDAZOLE
  5. ADVIL [IBUPROFEN] [Concomitant]
     Active Substance: IBUPROFEN
  6. TADALAFIL. [Concomitant]
     Active Substance: TADALAFIL
  7. VITAMIN D3 [Concomitant]
     Active Substance: CHOLECALCIFEROL
  8. LISINOPRIL. [Concomitant]
     Active Substance: LISINOPRIL
  9. CLOBETASOL PROPIONATE. [Concomitant]
     Active Substance: CLOBETASOL PROPIONATE
  10. DUPIXENT [Suspect]
     Active Substance: DUPILUMAB
     Dosage: 300 MG, QOW
     Dates: start: 20190701
  11. PRILOSEC [Concomitant]
     Active Substance: OMEPRAZOLE MAGNESIUM
  12. VITAMIN C [Concomitant]
     Active Substance: ASCORBIC ACID
  13. ALPRAZOLAM. [Concomitant]
     Active Substance: ALPRAZOLAM

REACTIONS (5)
  - Lacrimation increased [Unknown]
  - Sleep disorder [Unknown]
  - Condition aggravated [Unknown]
  - Skin haemorrhage [Unknown]
  - Pigmentation disorder [Recovering/Resolving]

NARRATIVE: CASE EVENT DATE: 2019
